FAERS Safety Report 5023714-1 (Version None)
Quarter: 2006Q2

REPORT INFORMATION
  Report Type: 
  Country: None (occurrence: None)
  Receive Date: 20060606
  Receipt Date: 20060517
  Transmission Date: 20061013
  Serious: Yes (Other)
  Sender: FDA-Public Use
  Company Number: US200605003866

PATIENT
  Age: 70 Year
  Sex: Male

DRUGS (2)
  1. HUMULIN N [Suspect]
     Indication: DIABETES MELLITUS NON-INSULIN-DEPENDENT
     Dosage: 37 U, EACH EVENING, UNK
  2. GLUCOPHAGE ^UNS^ (METFORMIN HYDROCHLORIDE) [Concomitant]

REACTIONS (6)
  - ACCIDENT [None]
  - BLOOD GLUCOSE INCREASED [None]
  - CRYPTOGENIC CIRRHOSIS [None]
  - NEUROPATHY PERIPHERAL [None]
  - PHARMACEUTICAL PRODUCT COMPLAINT [None]
  - POST-TRAUMATIC STRESS DISORDER [None]
